FAERS Safety Report 5668110-9 (Version None)
Quarter: 2008Q1

REPORT INFORMATION
  Report Type: 
  Country: None (occurrence: None)
  Receive Date: 20080313
  Receipt Date: 20080303
  Transmission Date: 20080703
  Serious: Yes (Other)
  Sender: FDA-Public Use
  Company Number: 2008005690

PATIENT
  Sex: Female

DRUGS (1)
  1. DESITIN DIAPER RASH (ZINC OXIDE) [Suspect]
     Indication: DERMATITIS DIAPER
     Dosage: TOPICAL
     Route: 061

REACTIONS (2)
  - APPLICATION SITE BURN [None]
  - PAIN [None]
